FAERS Safety Report 4412122-X (Version None)
Quarter: 2004Q3

REPORT INFORMATION
  Report Type: 
  Country: None (occurrence: None)
  Receive Date: 20040730
  Receipt Date: 20040719
  Transmission Date: 20050211
  Serious: Yes (Death)
  Sender: FDA-Public Use
  Company Number: NL-GLAXOSMITHKLINE-B0340601A

PATIENT
  Age: 30 Year
  Sex: Male

DRUGS (2)
  1. AUGMENTIN '250' [Suspect]
     Dosage: 1TAB THREE TIMES PER DAY
     Route: 048
     Dates: start: 20040413, end: 20040416
  2. IMURAN [Suspect]
     Indication: CROHN'S DISEASE
     Dosage: 100MG PER DAY
     Route: 048
     Dates: start: 20000301, end: 20040416

REACTIONS (17)
  - ACIDOSIS [None]
  - ASPIRATION [None]
  - DYSPNOEA [None]
  - EPSTEIN-BARR VIRUS INFECTION [None]
  - FATIGUE [None]
  - GASTROINTESTINAL HAEMORRHAGE [None]
  - HEPATIC FUNCTION ABNORMAL [None]
  - HEPATITIS [None]
  - HISTIOCYTOSIS HAEMATOPHAGIC [None]
  - HYPOXIA [None]
  - INFECTIOUS MONONUCLEOSIS [None]
  - JAUNDICE [None]
  - MULTI-ORGAN FAILURE [None]
  - PANCYTOPENIA [None]
  - PYREXIA [None]
  - RENAL FAILURE [None]
  - THROMBOCYTOPENIA [None]
